FAERS Safety Report 7447947-X (Version None)
Quarter: 2011Q2

REPORT INFORMATION
  Report Type: 
  Country: None (occurrence: None)
  Receive Date: 20110429
  Receipt Date: 20110418
  Transmission Date: 20111010
  Serious: Yes (Other)
  Sender: FDA-Public Use
  Company Number: US-WATSON-2011-05356

PATIENT
  Age: 13 Year
  Sex: Male
  Weight: 40 kg

DRUGS (1)
  1. TESTOSTERONE ENANTHATE [Suspect]
     Indication: DELAYED PUBERTY
     Dosage: 50 MG, SINGLE USE ONLY
     Route: 030
     Dates: start: 20110320, end: 20110320

REACTIONS (2)
  - BLINDNESS TRANSIENT [None]
  - MIGRAINE WITH AURA [None]
